FAERS Safety Report 6366339-8 (Version None)
Quarter: 2009Q3

REPORT INFORMATION
  Report Type: 
  Country: None (occurrence: None)
  Receive Date: 20090921
  Receipt Date: 20090908
  Transmission Date: 20100115
  Serious: Yes (Other)
  Sender: FDA-Public Use
  Company Number: DK-NOVOPROD-289584

PATIENT
  Sex: Female
  Weight: 59 kg

DRUGS (1)
  1. VAGIFEM [Suspect]
     Indication: ATROPHIC VULVOVAGINITIS
     Dosage: 25 UG, QD
     Route: 067
     Dates: start: 20090530, end: 20090630

REACTIONS (1)
  - DIARRHOEA [None]
